FAERS Safety Report 16641903 (Version 1)
Quarter: 2019Q3

REPORT INFORMATION
  Report Type: Spontaneous
  Country: JP (occurrence: JP)
  Receive Date: 20190729
  Receipt Date: 20190729
  Transmission Date: 20191004
  Serious: Yes (Other)
  Sender: FDA-Public Use
  Company Number: JP-PFIZER INC-2019297263

PATIENT
  Age: 48 Year
  Sex: Female

DRUGS (7)
  1. MAGNESIUM OXIDE. [Concomitant]
     Active Substance: MAGNESIUM OXIDE
     Dosage: UNK
  2. HERBAL NOS [Concomitant]
     Active Substance: HERBALS
     Dosage: UNK
  3. LIXIANA [Concomitant]
     Active Substance: EDOXABAN TOSYLATE
     Dosage: UNK
  4. PACLITAXEL HOSPIRA [Suspect]
     Active Substance: PACLITAXEL
     Indication: OVARIAN CANCER
     Dosage: 230 MG, DAILY
     Route: 041
     Dates: start: 201904
  5. PACLITAXEL HOSPIRA [Suspect]
     Active Substance: PACLITAXEL
     Dosage: 230 MG, DAILY
     Route: 041
     Dates: end: 20190619
  6. FERROMIA [Concomitant]
     Active Substance: SODIUM FERROUS CITRATE
     Dosage: UNK
  7. LOXOPROFEN [Concomitant]
     Active Substance: LOXOPROFEN
     Dosage: UNK

REACTIONS (2)
  - Cerebellar embolism [Unknown]
  - Vertigo [Recovering/Resolving]

NARRATIVE: CASE EVENT DATE: 20190628
